FAERS Safety Report 10639858 (Version 1)
Quarter: 2014Q4

REPORT INFORMATION
  Report Type: Spontaneous
  Country: US (occurrence: None)
  Receive Date: 20141205
  Receipt Date: 20141205
  Transmission Date: 20150529
  Serious: No
  Sender: FDA-Public Use
  Company Number: None

PATIENT
  Age: 6 Month
  Sex: Male
  Weight: 7.1 kg

DRUGS (1)
  1. NUK TOOTH AND GUM CLEANSER [Suspect]
     Active Substance: LYSOZYME, CHICKEN EGG WHITE
     Indication: DENTAL DISORDER PROPHYLAXIS

REACTIONS (2)
  - Erythema [None]
  - Swelling face [None]

NARRATIVE: CASE EVENT DATE: 20140718
